FAERS Safety Report 6133614-1 (Version None)
Quarter: 2009Q1

REPORT INFORMATION
  Report Type: 
  Country: None (occurrence: None)
  Receive Date: 20090324
  Receipt Date: 20090317
  Transmission Date: 20090719
  Serious: Yes (Death)
  Sender: FDA-Public Use
  Company Number: ADE2009-0481

PATIENT
  Age: 56 Year
  Sex: Male
  Weight: 74 kg

DRUGS (5)
  1. CITALOPRAM HYDROBROMIDE [Suspect]
     Indication: DEPRESSION
     Dosage: 40MG - ORAL
     Route: 048
     Dates: start: 20090123, end: 20090125
  2. ATENOLOL [Concomitant]
  3. DIGOXIN [Concomitant]
  4. PERINDOPRIL ERBUMINE [Concomitant]
  5. WARFARIN SODIUM [Concomitant]

REACTIONS (1)
  - COMPLETED SUICIDE [None]
